FAERS Safety Report 25165323 (Version 1)
Quarter: 2025Q2

REPORT INFORMATION
  Report Type: Report from Study
  Country: FR (occurrence: None)
  Receive Date: 20250407
  Receipt Date: 20250407
  Transmission Date: 20250717
  Serious: Yes (Other)
  Sender: i3 Pharmaceuticals
  Company Number: None

PATIENT
  Sex: Male

DRUGS (2)
  1. POSACONAZOLE [Suspect]
     Active Substance: POSACONAZOLE
     Indication: Antifungal prophylaxis
  2. PREDNISOLONE [Concomitant]
     Active Substance: PREDNISOLONE
     Indication: Product used for unknown indication
     Route: 065

REACTIONS (5)
  - Hallucination, visual [Recovered/Resolved]
  - Neuropsychological symptoms [Recovered/Resolved]
  - Disorientation [Recovered/Resolved]
  - Somnambulism [Recovered/Resolved]
  - Insomnia [Recovered/Resolved]
